FAERS Safety Report 5931929-0 (Version None)
Quarter: 2008Q4

REPORT INFORMATION
  Report Type: 
  Country: None (occurrence: None)
  Receive Date: 20081027
  Receipt Date: 20081015
  Transmission Date: 20090506
  Serious: Yes (Other)
  Sender: FDA-Public Use
  Company Number: PHHY2008BR18470

PATIENT
  Age: 37 Year
  Sex: Male

DRUGS (4)
  1. TOFRANIL [Suspect]
     Indication: DEPRESSION
     Dosage: 25 MG, QD
     Route: 048
     Dates: start: 20080801
  2. HALDOL [Concomitant]
     Indication: DEPRESSION
     Dosage: 5 MG, 1 TABLET AT NIGHT
  3. PROMETHAZINE [Concomitant]
     Dosage: 25 MG
  4. BIPERIDEN HYDROCHLORIDE TAB [Concomitant]
     Indication: DEPRESSION
     Dosage: 2 MG, 1 TABLET I THE MORNING

REACTIONS (9)
  - AGITATION [None]
  - COUGH [None]
  - INSOMNIA [None]
  - PRURITUS GENERALISED [None]
  - RESTLESSNESS [None]
  - RHINITIS [None]
  - SINUSITIS [None]
  - SNEEZING [None]
  - WEIGHT DECREASED [None]
